FAERS Safety Report 6932171-7 (Version None)
Quarter: 2010Q3

REPORT INFORMATION
  Report Type: 
  Country: None (occurrence: None)
  Receive Date: 20100819
  Receipt Date: 20100811
  Transmission Date: 20110219
  Serious: Yes (Hospitalization)
  Sender: FDA-Public Use
  Company Number: B0669703A

PATIENT
  Sex: Female
  Weight: 87 kg

DRUGS (6)
  1. PROPAFENONE HCL [Suspect]
     Dosage: 300MG PER DAY
     Route: 048
     Dates: start: 20050406, end: 20050406
  2. TELMISARTAN [Concomitant]
     Indication: BLOOD PRESSURE
     Dosage: 80MG PER DAY
     Route: 048
  3. MOXONIDINE [Concomitant]
     Indication: BLOOD PRESSURE
     Dosage: .4MG PER DAY
     Route: 048
  4. CARVEDILOL [Concomitant]
     Indication: BLOOD PRESSURE
     Dosage: 25MG TWICE PER DAY
     Route: 048
  5. DOXAZOSIN [Concomitant]
     Indication: BLOOD PRESSURE
     Dosage: 2MG TWICE PER DAY
     Route: 048
  6. LACIDIPINE [Concomitant]
     Indication: BLOOD PRESSURE
     Dosage: 2MG PER DAY
     Route: 048

REACTIONS (1)
  - ELECTROCARDIOGRAM QRS COMPLEX PROLONGED [None]
